FAERS Safety Report 8383656-0 (Version None)
Quarter: 2012Q2

REPORT INFORMATION
  Report Type: 
  Country: None (occurrence: None)
  Receive Date: 20120524
  Receipt Date: 20120515
  Transmission Date: 20120825
  Serious: Yes (Hospitalization)
  Sender: FDA-Public Use
  Company Number: US-BAYER-2012-048687

PATIENT
  Age: 77 Year
  Sex: Female

DRUGS (10)
  1. ALLEGRA [Concomitant]
     Indication: SEASONAL ALLERGY
     Dosage: 25 MG, QD
     Route: 048
  2. ALKA-SELTZER ORIGINAL [Suspect]
     Dosage: UNK
     Dates: start: 20111101
  3. SPIRIVA [Suspect]
     Indication: CHRONIC OBSTRUCTIVE PULMONARY DISEASE
     Dosage: DAILY DOSE 18 ?G
     Route: 055
     Dates: start: 20110501
  4. PREDNISONE [Concomitant]
     Indication: ASTHMA
     Dosage: 5 MG, QD
     Dates: start: 20120101
  5. SPIRIVA [Suspect]
     Indication: ASTHMA
  6. SYMBICORT [Concomitant]
     Indication: ASTHMA
  7. SYMBICORT [Concomitant]
     Indication: CHRONIC OBSTRUCTIVE PULMONARY DISEASE
  8. ALBUTEROL [Concomitant]
     Indication: CHRONIC OBSTRUCTIVE PULMONARY DISEASE
     Dosage: UNK
     Route: 055
  9. SINGULAIR [Concomitant]
     Indication: SEASONAL ALLERGY
     Dosage: 10 MG, QD
     Route: 048
  10. NORVASC [Concomitant]
     Indication: HYPERTENSION
     Route: 048

REACTIONS (2)
  - ASTHMA [None]
  - MUSCULOSKELETAL PAIN [None]
